FAERS Safety Report 7028657-X (Version None)
Quarter: 2010Q4

REPORT INFORMATION
  Report Type: 
  Country: None (occurrence: None)
  Receive Date: 20101005
  Receipt Date: 20100924
  Transmission Date: 20110411
  Serious: Yes (Other)
  Sender: FDA-Public Use
  Company Number: GR-SANOFI-AVENTIS-2010SA057480

PATIENT
  Sex: Female

DRUGS (6)
  1. OXALIPLATIN [Suspect]
     Route: 042
  2. OXALIPLATIN [Suspect]
     Route: 042
  3. BEVACIZUMAB [Suspect]
     Route: 042
  4. BEVACIZUMAB [Suspect]
     Route: 042
  5. CAPECITABINE [Suspect]
     Route: 065
  6. CAPECITABINE [Suspect]
     Route: 065

REACTIONS (1)
  - INTESTINAL PERFORATION [None]
